FAERS Safety Report 6647073-3 (Version None)
Quarter: 2010Q1

REPORT INFORMATION
  Report Type: 
  Country: None (occurrence: None)
  Receive Date: 20100323
  Receipt Date: 20100322
  Transmission Date: 20100710
  Serious: Yes (Other)
  Sender: FDA-Public Use
  Company Number: TW-ROXANE LABORATORIES, INC.-2010-RO-00311RO

PATIENT
  Age: 33 Year
  Sex: Female

DRUGS (6)
  1. OXCARBAZEPINE [Suspect]
     Indication: MANIA
     Dosage: 600 MG
  2. OXCARBAZEPINE [Suspect]
     Indication: BIPOLAR I DISORDER
  3. CLONAZEPAM [Suspect]
     Indication: MANIA
     Dosage: 0.5 MG
  4. CLONAZEPAM [Suspect]
     Indication: BIPOLAR I DISORDER
  5. LITHIUM [Concomitant]
     Indication: MANIA
     Dosage: 600 MG
  6. LITHIUM [Concomitant]
     Dosage: 900 MG

REACTIONS (1)
  - NEUTROPENIA [None]
